FAERS Safety Report 6913633-5 (Version None)
Quarter: 2010Q3

REPORT INFORMATION
  Report Type: 
  Country: None (occurrence: None)
  Receive Date: 20100803
  Receipt Date: 20100722
  Transmission Date: 20110219
  Serious: Yes (Death)
  Sender: FDA-Public Use
  Company Number: JHP201000215

PATIENT
  Age: 66 Year
  Sex: Male

DRUGS (2)
  1. COLY-MYCIN M [Suspect]
     Indication: PNEUMONIA
  2. IMIPENEM (CILASTATIN SODIUM, IMIPENEM) [Suspect]
     Indication: PNEUMONIA

REACTIONS (3)
  - MULTI-ORGAN FAILURE [None]
  - SHOCK [None]
  - TOXIC EPIDERMAL NECROLYSIS [None]
